FAERS Safety Report 7116031-7 (Version None)
Quarter: 2010Q4

REPORT INFORMATION
  Report Type: 
  Country: None (occurrence: None)
  Receive Date: 20101122
  Receipt Date: 20101112
  Transmission Date: 20110411
  Serious: Yes (Hospitalization)
  Sender: FDA-Public Use
  Company Number: GB-ROCHE-736098

PATIENT
  Sex: Female
  Weight: 60 kg

DRUGS (3)
  1. TRASTUZUMAB [Suspect]
     Indication: BREAST CANCER
     Route: 042
     Dates: start: 20100215, end: 20100929
  2. CAPECITABINE [Suspect]
     Indication: BREAST CANCER
     Route: 048
     Dates: start: 20100728, end: 20100908
  3. VINORELBINE [Suspect]
     Indication: BREAST CANCER
     Route: 042
     Dates: start: 20100301, end: 20100330

REACTIONS (1)
  - DERMATITIS EXFOLIATIVE [None]
